FAERS Safety Report 9366105 (Version 3)
Quarter: 2013Q3

REPORT INFORMATION
  Report Type: Spontaneous
  Country: AR (occurrence: AR)
  Receive Date: 20130625
  Receipt Date: 20130916
  Transmission Date: 20140515
  Serious: Yes (Other)
  Sender: FDA-Public Use
  Company Number: AR-SANOFI-AVENTIS-2013SA061626

PATIENT
  Age: 2 Year
  Sex: Female

DRUGS (1)
  1. ALLEGRA [Suspect]
     Indication: CHRONIC SPONTANEOUS URTICARIA
     Dosage: FORM- SUSPENSION
     Route: 048
     Dates: start: 201208, end: 20130612

REACTIONS (1)
  - Blood alkaline phosphatase increased [Unknown]
